FAERS Safety Report 21835566 (Version 2)
Quarter: 2023Q1

REPORT INFORMATION
  Report Type: Report from Study
  Country: US (occurrence: US)
  Receive Date: 20230109
  Receipt Date: 20230208
  Transmission Date: 20230418
  Serious: No
  Sender: FDA-Public Use
  Company Number: US-ABBVIE-22K-163-4456019-00

PATIENT
  Sex: Male

DRUGS (2)
  1. IMBRUVICA [Suspect]
     Active Substance: IBRUTINIB
     Indication: Chronic lymphocytic leukaemia
     Route: 048
     Dates: start: 202206, end: 202206
  2. IMBRUVICA [Suspect]
     Active Substance: IBRUTINIB
     Indication: Chronic lymphocytic leukaemia
     Route: 048
     Dates: start: 20220620

REACTIONS (17)
  - Lethargy [Not Recovered/Not Resolved]
  - Headache [Unknown]
  - Hypersensitivity [Unknown]
  - White blood cell count increased [Unknown]
  - Feeling hot [Unknown]
  - Fatigue [Not Recovered/Not Resolved]
  - Feeling abnormal [Unknown]
  - Insomnia [Unknown]
  - Lymphadenopathy [Recovering/Resolving]
  - Unevaluable event [Unknown]
  - Poor quality sleep [Unknown]
  - Ocular discomfort [Recovering/Resolving]
  - Asthenia [Unknown]
  - COVID-19 [Recovering/Resolving]
  - Sinusitis [Recovering/Resolving]
  - Lethargy [Not Recovered/Not Resolved]
  - Malaise [Unknown]

NARRATIVE: CASE EVENT DATE: 20220101
